FAERS Safety Report 18300567 (Version 4)
Quarter: 2021Q3

REPORT INFORMATION
  Report Type: Other
  Country: CA (occurrence: CA)
  Receive Date: 20200923
  Receipt Date: 20210815
  Transmission Date: 20211014
  Serious: Yes (Death, Life-Threatening, Hospitalization, Other)
  Sender: FDA-Public Use
  Company Number: CA-CELLTRION INC.-2020CA026719

PATIENT

DRUGS (16)
  1. PREDNISONE. [Suspect]
     Active Substance: PREDNISONE
     Indication: PRODUCT USED FOR UNKNOWN INDICATION
     Route: 065
  2. PLAQUENIL [Suspect]
     Active Substance: HYDROXYCHLOROQUINE SULFATE
     Indication: PRODUCT USED FOR UNKNOWN INDICATION
     Route: 065
  3. RISEDRONATE SODIUM. [Suspect]
     Active Substance: RISEDRONATE SODIUM
     Indication: PRODUCT USED FOR UNKNOWN INDICATION
     Route: 065
  4. SULFASALAZINE. [Concomitant]
     Active Substance: SULFASALAZINE
  5. RITUXIMAB (UNKNOWN) [Suspect]
     Active Substance: RITUXIMAB
     Indication: RHEUMATOID ARTHRITIS
     Dosage: 1000.0 MG
     Route: 042
  6. GABAPENTIN. [Concomitant]
     Active Substance: GABAPENTIN
  7. HYDROMORPHONE [Concomitant]
     Active Substance: HYDROMORPHONE
  8. ELTROXIN [Concomitant]
     Active Substance: LEVOTHYROXINE
  9. LANSOPRAZOLE. [Concomitant]
     Active Substance: LANSOPRAZOLE
  10. LORAZEPAM. [Concomitant]
     Active Substance: LORAZEPAM
  11. NAPROXEN. [Suspect]
     Active Substance: NAPROXEN
     Indication: PRODUCT USED FOR UNKNOWN INDICATION
     Route: 065
  12. HYDROXYCHLOROQUINE [Concomitant]
     Active Substance: HYDROXYCHLOROQUINE
  13. APO?LEFLUNOMIDE [Suspect]
     Active Substance: LEFLUNOMIDE
     Indication: PRODUCT USED FOR UNKNOWN INDICATION
     Route: 065
  14. ACETAMINOPHEN. [Concomitant]
     Active Substance: ACETAMINOPHEN
     Dosage: 650.0 MILLIGRAM
     Route: 048
  15. DIPHENHYDRAMINE HYDROCHLORIDE. [Concomitant]
     Active Substance: DIPHENHYDRAMINE HYDROCHLORIDE
     Dosage: 50.0 MILLIGRAM
     Route: 048
  16. METHYLPREDNISOLONE. [Concomitant]
     Active Substance: METHYLPREDNISOLONE
     Dosage: 100.0 MILLIGRAM
     Route: 042

REACTIONS (32)
  - Body temperature decreased [Fatal]
  - Malaise [Fatal]
  - Nasal congestion [Fatal]
  - Blood pressure fluctuation [Fatal]
  - Arthralgia [Fatal]
  - Chills [Fatal]
  - Hypotension [Fatal]
  - Blood creatinine increased [Fatal]
  - Ear pruritus [Fatal]
  - Single functional kidney [Fatal]
  - Colitis microscopic [Fatal]
  - Cough [Fatal]
  - Fatigue [Fatal]
  - Cataract [Fatal]
  - Cardiac arrest [Fatal]
  - Weight decreased [Fatal]
  - Weight increased [Fatal]
  - Oral pruritus [Fatal]
  - White blood cell count decreased [Fatal]
  - Blood pressure decreased [Fatal]
  - Nasopharyngitis [Fatal]
  - Renal disorder [Fatal]
  - Sleep disorder [Fatal]
  - Renal failure [Fatal]
  - Headache [Fatal]
  - Perforated ulcer [Fatal]
  - Procedural pain [Fatal]
  - Throat irritation [Fatal]
  - Blood pressure increased [Fatal]
  - Diarrhoea [Fatal]
  - Hypertension [Fatal]
  - Pyrexia [Fatal]
